FAERS Safety Report 4609977-2 (Version None)
Quarter: 2005Q1

REPORT INFORMATION
  Report Type: 
  Country: None (occurrence: None)
  Receive Date: 20050315
  Receipt Date: 20050308
  Transmission Date: 20050727
  Serious: Yes (Life-Threatening, Disabling)
  Sender: FDA-Public Use
  Company Number: 2005AP01543

PATIENT
  Age: 71 Year
  Sex: Female
  Weight: 56.9 kg

DRUGS (3)
  1. OMEPRAL [Suspect]
     Indication: REFLUX OESOPHAGITIS
     Dosage: 20 MG DAILY PO
     Route: 048
     Dates: start: 20050201, end: 20050219
  2. SELBEX [Concomitant]
  3. GASMOTIN [Concomitant]

REACTIONS (9)
  - ACIDOSIS [None]
  - ANAEMIA [None]
  - AZOTAEMIA [None]
  - FACE OEDEMA [None]
  - HAEMODIALYSIS [None]
  - HAEMORRHOIDAL HAEMORRHAGE [None]
  - LEUKOPENIA [None]
  - RENAL IMPAIRMENT [None]
  - THROMBOCYTOPENIA [None]
